FAERS Safety Report 5114978-4 (Version None)
Quarter: 2006Q3

REPORT INFORMATION
  Report Type: 
  Country: None (occurrence: None)
  Receive Date: 20060926
  Receipt Date: 20060725
  Transmission Date: 20061208
  Serious: Yes (Other)
  Sender: FDA-Public Use
  Company Number: JP-MERCK-0607USA05361

PATIENT
  Age: 75 Year
  Sex: Male

DRUGS (7)
  1. PEPCID [Suspect]
     Route: 048
     Dates: start: 20050624, end: 20060629
  2. CINAL [Concomitant]
     Route: 048
     Dates: start: 20050624
  3. ASPIRIN [Concomitant]
     Indication: PROPHYLAXIS
     Route: 048
     Dates: start: 20050624
  4. MENESIT [Concomitant]
     Indication: PARKINSON'S DISEASE
     Route: 048
     Dates: start: 20050624
  5. PURSENNID [Concomitant]
     Indication: CONSTIPATION
     Route: 048
     Dates: start: 20050624
  6. EVIPROSTAT [Concomitant]
     Route: 048
  7. FELDENE [Concomitant]
     Indication: MYALGIA
     Route: 061
     Dates: start: 20050624

REACTIONS (2)
  - DECUBITUS ULCER [None]
  - RHABDOMYOLYSIS [None]
